FAERS Safety Report 6899188-2 (Version None)
Quarter: 2010Q3

REPORT INFORMATION
  Report Type: 
  Country: None (occurrence: None)
  Receive Date: 20100802
  Receipt Date: 20080201
  Transmission Date: 20110219
  Serious: No
  Sender: FDA-Public Use
  Company Number: US-PFIZER INC-2007105329

PATIENT
  Sex: Female
  Weight: 95.3 kg

DRUGS (5)
  1. LYRICA [Suspect]
     Indication: FIBROMYALGIA
     Dosage: TDD: 25-50 MG
     Dates: start: 20071129
  2. SUDAFED 12 HOUR [Concomitant]
  3. DARVON [Concomitant]
  4. ANTIHISTAMINES [Concomitant]
  5. ALLERGY MEDICATION [Concomitant]

REACTIONS (1)
  - DRUG SCREEN POSITIVE [None]
